FAERS Safety Report 6442845-2 (Version None)
Quarter: 2009Q4

REPORT INFORMATION
  Report Type: 
  Country: None (occurrence: None)
  Receive Date: 20091112
  Receipt Date: 20091102
  Transmission Date: 20100525
  Serious: Yes (Death, Hospitalization)
  Sender: FDA-Public Use
  Company Number: 2009-04608

PATIENT
  Age: 38 Year
  Sex: Male

DRUGS (7)
  1. VELCADE [Suspect]
     Indication: MULTIPLE MYELOMA
     Dosage: 1: 2.7 MG,   INTRAVENOUS
     Route: 042
     Dates: start: 20090703, end: 20090829
  2. DOXORUBICIN HCL [Suspect]
     Indication: MULTIPLE MYELOMA
     Dosage: 63 MG,  INTRAVENOUS
     Route: 042
     Dates: start: 20090703, end: 20090829
  3. DEXAMETHASONE TAB [Suspect]
     Indication: MULTIPLE MYELOMA
     Dosage: 4 MG, ORAL
     Route: 048
     Dates: start: 20090703, end: 20090829
  4. DEXAMETHASONE TAB [Suspect]
     Indication: MULTIPLE MYELOMA
     Dosage: 4 MG, ORAL
     Route: 048
     Dates: start: 20090902
  5. CYCLOPHOSPHAMIDE [Suspect]
     Indication: MULTIPLE MYELOMA
     Dates: start: 20090902
  6. ETOPOSIDE [Suspect]
     Indication: MULTIPLE MYELOMA
     Dates: start: 20090902
  7. CISPLATIN [Suspect]
     Indication: MULTIPLE MYELOMA
     Dates: start: 20090902

REACTIONS (10)
  - EPISTAXIS [None]
  - GENERAL PHYSICAL HEALTH DETERIORATION [None]
  - H1N1 INFLUENZA [None]
  - HYPERSENSITIVITY [None]
  - MALIGNANT NEOPLASM PROGRESSION [None]
  - MULTIPLE MYELOMA [None]
  - PNEUMONIA INFLUENZAL [None]
  - RENAL IMPAIRMENT [None]
  - RESPIRATORY DISORDER [None]
  - TUMOUR LYSIS SYNDROME [None]
